FAERS Safety Report 7555010-2 (Version None)
Quarter: 2011Q2

REPORT INFORMATION
  Report Type: 
  Country: None (occurrence: None)
  Receive Date: 20110610
  Receipt Date: 20110124
  Transmission Date: 20111010
  Serious: Yes (Death)
  Sender: FDA-Public Use
  Company Number: US-2011-10349

PATIENT
  Age: 5 Year
  Sex: Male

DRUGS (5)
  1. FLUDARA [Concomitant]
  2. TACROLIMUS [Concomitant]
  3. ANTI-THYMOCYTE GLOBULIN NOS [Concomitant]
  4. BUSULFEX [Suspect]
     Indication: BONE MARROW CONDITIONING REGIMEN
  5. PREDNISOLONE [Concomitant]

REACTIONS (4)
  - FUNGAL INFECTION [None]
  - SEPSIS [None]
  - PNEUMOCYSTIS JIROVECI INFECTION [None]
  - EPSTEIN-BARR VIRUS INFECTION [None]
